FAERS Safety Report 6738512-8 (Version None)
Quarter: 2010Q2

REPORT INFORMATION
  Report Type: 
  Country: None (occurrence: None)
  Receive Date: 20100524
  Receipt Date: 20100514
  Transmission Date: 20101027
  Serious: Yes (Hospitalization, Other)
  Sender: FDA-Public Use
  Company Number: PHHO2010US07409

PATIENT
  Sex: Male
  Weight: 84.807 kg

DRUGS (7)
  1. DIOVAN HCT [Suspect]
     Indication: HYPERTENSION
     Dosage: 160MG
  2. DIOVAN HCT [Suspect]
     Dosage: 25MG
  3. ADALAT [Suspect]
  4. ATORVASTATIN [Concomitant]
     Dosage: UNK
  5. COVERSYL [Concomitant]
     Dosage: UNK
  6. LYRICA [Concomitant]
     Dosage: UNK
  7. ASPIRIN [Concomitant]
     Dosage: UNK

REACTIONS (12)
  - AORTIC ANEURYSM [None]
  - BLADDER CANCER [None]
  - HEPATIC LESION [None]
  - LIVEDO RETICULARIS [None]
  - LYMPHADENOPATHY [None]
  - LYMPHOPROLIFERATIVE DISORDER [None]
  - MANTLE CELL LYMPHOMA [None]
  - RENAL FAILURE [None]
  - RENAL IMPAIRMENT [None]
  - RESPIRATION ABNORMAL [None]
  - SPLENOMEGALY [None]
  - TRANSURETHRAL BLADDER RESECTION [None]
